FAERS Safety Report 19912067 (Version 2)
Quarter: 2022Q4

REPORT INFORMATION
  Report Type: Spontaneous
  Country: FR (occurrence: FR)
  Receive Date: 20211004
  Receipt Date: 20221202
  Transmission Date: 20230112
  Serious: Yes (Hospitalization, Other)
  Sender: FDA-Public Use
  Company Number: None

PATIENT
  Age: 51 Year
  Sex: Male
  Weight: 67 kg

DRUGS (11)
  1. PROPOFOL [Suspect]
     Active Substance: PROPOFOL
     Indication: Sedation
     Dosage: 0.20 ML/HOUR
     Route: 042
     Dates: start: 20210401, end: 20210521
  2. CIPROFLOXACIN [Suspect]
     Active Substance: CIPROFLOXACIN
     Indication: Antibiotic prophylaxis
     Dosage: 400 MILLIGRAM, QD
     Route: 042
     Dates: start: 20210402, end: 20210406
  3. AMOXICILLIN [Suspect]
     Active Substance: AMOXICILLIN
     Indication: Antibiotic prophylaxis
     Dosage: 3 GRAM, QD
     Route: 065
     Dates: start: 20210415, end: 20210422
  4. MEROPENEM [Suspect]
     Active Substance: MEROPENEM
     Indication: Antibiotic prophylaxis
     Dosage: 1 GRAM, QD
     Route: 042
     Dates: start: 20210401, end: 20210402
  5. SUFENTANIL [Suspect]
     Active Substance: SUFENTANIL
     Indication: Sedation
     Dosage: 0.5 ML / HEURE
     Route: 042
     Dates: start: 20210401
  6. LANSOPRAZOLE [Suspect]
     Active Substance: LANSOPRAZOLE
     Indication: Prophylaxis against gastrointestinal ulcer
     Dosage: 30 MILLIGRAM, QD
     Route: 048
     Dates: start: 20210403
  7. IOMERON [Suspect]
     Active Substance: IOMEPROL
     Indication: Computerised tomogram
     Dosage: SINGLE DOSE, 1 TOTAL
     Route: 042
     Dates: start: 20210420, end: 20210420
  8. HEPARIN [Suspect]
     Active Substance: HEPARIN SODIUM
     Indication: Thrombosis prophylaxis
     Dosage: 6000 INTERNATIONAL UNIT, QD
     Route: 058
     Dates: start: 20210316, end: 20210414
  9. INSULIN NOS [Suspect]
     Active Substance: INSULIN NOS
     Indication: Insulin therapy
     Dosage: 100 UI/ML EN FONCTION DE LA GLYC?MIE
     Route: 058
     Dates: start: 20210406, end: 20210409
  10. ERTAPENEM [Suspect]
     Active Substance: ERTAPENEM
     Indication: Antibiotic prophylaxis
     Dosage: UNK
     Route: 042
     Dates: start: 20210331, end: 20210331
  11. IMIPENEM [Suspect]
     Active Substance: IMIPENEM
     Indication: Antibiotic prophylaxis
     Dosage: 2 GRAM, QD
     Route: 042
     Dates: start: 20210420, end: 20210421

REACTIONS (2)
  - Drug reaction with eosinophilia and systemic symptoms [Recovering/Resolving]
  - Rash morbilliform [Recovering/Resolving]

NARRATIVE: CASE EVENT DATE: 20210406
